FAERS Safety Report 23144152 (Version 1)
Quarter: 2023Q4

REPORT INFORMATION
  Report Type: Report from Study
  Country: US (occurrence: US)
  Receive Date: 20231103
  Receipt Date: 20231103
  Transmission Date: 20240109
  Serious: Yes (Other)
  Sender: FDA-Public Use
  Company Number: US-INCYTE CORPORATION-2023IN011377

PATIENT

DRUGS (1)
  1. JAKAFI [Suspect]
     Active Substance: RUXOLITINIB
     Indication: Polycythaemia vera
     Dosage: 5 MILLIGRAM, QD
     Route: 065

REACTIONS (6)
  - Chronic kidney disease [Unknown]
  - Blindness [Unknown]
  - Lung disorder [Unknown]
  - Cardiac disorder [Unknown]
  - Product availability issue [Unknown]
  - Anaemia [Unknown]
